FAERS Safety Report 10060198 (Version 1)
Quarter: 2014Q2

REPORT INFORMATION
  Report Type: Spontaneous
  Country: ZA (occurrence: ZA)
  Receive Date: 20140404
  Receipt Date: 20140404
  Transmission Date: 20141212
  Serious: Yes (Other)
  Sender: FDA-Public Use
  Company Number: ZA-BRISTOL-MYERS SQUIBB COMPANY-20586970

PATIENT
  Age: 28 Year
  Sex: Female

DRUGS (5)
  1. GLUCOPHAGE [Suspect]
     Indication: GESTATIONAL DIABETES
  2. GLUCOPHAGE [Suspect]
     Indication: POLYCYSTIC OVARIES
  3. ELTROXIN [Suspect]
     Indication: HYPOTHYROIDISM
  4. PROGESTERONE [Concomitant]
     Indication: INTRAPARTUM HAEMORRHAGE
  5. CLEXANE [Concomitant]
     Dosage: FIRST PREGNANCY, FROM 8 WEEKS OF GESTATION TO BIRTH AT 35 WEEKS.?AT 7 WEEKS GESTATION - ONGOING
     Route: 058

REACTIONS (3)
  - Abortion spontaneous [Unknown]
  - Maternal exposure during pregnancy [Recovered/Resolved]
  - Off label use [Unknown]
